FAERS Safety Report 17470019 (Version 1)
Quarter: 2020Q1

REPORT INFORMATION
  Report Type: Spontaneous
  Country: US (occurrence: US)
  Receive Date: 20200227
  Receipt Date: 20200227
  Transmission Date: 20200409
  Serious: No
  Sender: FDA-Public Use
  Company Number: US-AKRON, INC.-2081038

PATIENT
  Age: 70 Year
  Sex: Female

DRUGS (1)
  1. DORZOLAMIDE TIMOLOL MALEATE OPHTHALMIC SOLUTION [Suspect]
     Active Substance: DORZOLAMIDE HYDROCHLORIDE\TIMOLOL MALEATE
     Route: 047

REACTIONS (2)
  - Ocular discomfort [Recovered/Resolved]
  - Eye irritation [Recovered/Resolved]
